FAERS Safety Report 8114196-1 (Version None)
Quarter: 2012Q1

REPORT INFORMATION
  Report Type: 
  Country: None (occurrence: None)
  Receive Date: 20120205
  Receipt Date: 20110708
  Transmission Date: 20120608
  Serious: No
  Sender: FDA-Public Use
  Company Number: US-ALLERGAN-1109213US

PATIENT
  Sex: Female

DRUGS (3)
  1. PRED FORTE [Suspect]
     Indication: CATARACT OPERATION COMPLICATION
     Dosage: UNK
     Route: 047
     Dates: start: 20110517
  2. PRED FORTE [Suspect]
     Dosage: UNK
  3. PRED FORTE [Suspect]
     Dosage: UNK

REACTIONS (1)
  - BLOOD GLUCOSE INCREASED [None]
